FAERS Safety Report 7350422-4 (Version None)
Quarter: 2011Q1

REPORT INFORMATION
  Report Type: 
  Country: None (occurrence: None)
  Receive Date: 20110314
  Receipt Date: 20110304
  Transmission Date: 20110831
  Serious: Yes (Other)
  Sender: FDA-Public Use
  Company Number: US-JNJFOC-20110302764

PATIENT
  Sex: Male

DRUGS (11)
  1. TYLOX [Suspect]
     Indication: BREAKTHROUGH PAIN
     Dosage: 5/500 MG AS NEEDED.
     Route: 048
  2. NORCO [Concomitant]
     Indication: BREAKTHROUGH PAIN
     Dosage: 10/325 MG AS NEEDED
     Route: 048
  3. DURAGESIC-50 [Suspect]
     Indication: BACK PAIN
     Dosage: 10 YEARS AGO
     Route: 062
  4. MORPHINE [Concomitant]
     Indication: BREAKTHROUGH PAIN
     Route: 048
  5. FENTANYL-100 [Suspect]
     Indication: BACK PAIN
     Route: 062
  6. GABAPENTINE [Concomitant]
     Indication: TREMOR
     Route: 048
  7. PERCOCET [Suspect]
     Indication: BREAKTHROUGH PAIN
     Route: 048
  8. DURAGESIC-50 [Suspect]
     Route: 062
  9. DURAGESIC-50 [Suspect]
     Dosage: NDC 50458-0094-05
     Route: 062
  10. SOMA [Concomitant]
     Indication: MUSCLE RELAXANT THERAPY
     Route: 048
  11. LORTAB [Concomitant]
     Indication: BREAKTHROUGH PAIN
     Route: 048

REACTIONS (7)
  - EMPHYSEMA [None]
  - WEIGHT INCREASED [None]
  - RESPIRATORY RATE DECREASED [None]
  - DRUG EFFECT DECREASED [None]
  - ASTHENIA [None]
  - MOVEMENT DISORDER [None]
  - BREAKTHROUGH PAIN [None]
